FAERS Safety Report 9265481 (Version 6)
Quarter: 2016Q3

REPORT INFORMATION
  Report Type: Spontaneous
  Country: US (occurrence: US)
  Receive Date: 20130501
  Receipt Date: 20160915
  Transmission Date: 20161109
  Serious: Yes (Hospitalization, Other)
  Sender: FDA-Public Use
  Company Number: US-009507513-1304USA014190

PATIENT
  Sex: Male
  Weight: 89.34 kg

DRUGS (1)
  1. PROPECIA [Suspect]
     Active Substance: FINASTERIDE
     Indication: ANDROGENETIC ALOPECIA
     Dosage: 1 MG, QD
     Route: 048
     Dates: start: 200310, end: 200606

REACTIONS (49)
  - Road traffic accident [Unknown]
  - Lethargy [Unknown]
  - Sleep disorder [Not Recovered/Not Resolved]
  - Musculoskeletal pain [Unknown]
  - Hypertension [Unknown]
  - Epididymal cyst [Unknown]
  - Productive cough [Unknown]
  - Hypercholesterolaemia [Unknown]
  - Intervertebral disc protrusion [Unknown]
  - Insomnia [Unknown]
  - Self-medication [Unknown]
  - Upper-airway cough syndrome [Unknown]
  - Testicular failure [Unknown]
  - Libido decreased [Not Recovered/Not Resolved]
  - Sexual dysfunction [Not Recovered/Not Resolved]
  - Muscle spasms [Unknown]
  - Chest discomfort [Unknown]
  - Asthenia [Not Recovered/Not Resolved]
  - Malaise [Unknown]
  - Joint swelling [Unknown]
  - Limb injury [Unknown]
  - Chronic fatigue syndrome [Not Recovered/Not Resolved]
  - Anorgasmia [Unknown]
  - Back pain [Not Recovered/Not Resolved]
  - Wheezing [Unknown]
  - Upper respiratory tract infection [Recovering/Resolving]
  - Depression [Not Recovered/Not Resolved]
  - Major depression [Not Recovered/Not Resolved]
  - Skin lesion [Unknown]
  - Hypogonadism [Not Recovered/Not Resolved]
  - Anxiety [Not Recovered/Not Resolved]
  - Nail growth abnormal [Unknown]
  - Arthralgia [Unknown]
  - Areflexia [Unknown]
  - Asthenia [Unknown]
  - Glucose tolerance impaired [Unknown]
  - Rash [Unknown]
  - Irritability [Unknown]
  - Musculoskeletal deformity [Unknown]
  - Haematuria [Unknown]
  - Erectile dysfunction [Not Recovered/Not Resolved]
  - Dermatofibrosarcoma protuberans [Recovered/Resolved]
  - Sleep disorder [Not Recovered/Not Resolved]
  - Testicular disorder [Unknown]
  - Balance disorder [Unknown]
  - Pain [Unknown]
  - Night sweats [Unknown]
  - Skin papilloma [Unknown]
  - Fatigue [Not Recovered/Not Resolved]

NARRATIVE: CASE EVENT DATE: 2003
